FAERS Safety Report 7496911-3 (Version None)
Quarter: 2011Q2

REPORT INFORMATION
  Report Type: 
  Country: None (occurrence: None)
  Receive Date: 20110523
  Receipt Date: 20110512
  Transmission Date: 20111010
  Serious: Yes (Hospitalization)
  Sender: FDA-Public Use
  Company Number: JP-PFIZER INC-2011073079

PATIENT
  Age: 80 Year
  Sex: Female
  Weight: 50 kg

DRUGS (4)
  1. MAGNESIUM SULFATE [Concomitant]
     Indication: CONSTIPATION
     Dosage: 330 MG, 3X/DAY
     Route: 048
     Dates: start: 20110208
  2. DECADRON [Concomitant]
     Indication: NAUSEA
     Dosage: 2 MG, 2X/DAY
     Route: 048
     Dates: start: 20110214, end: 20110305
  3. CAMPTOSAR [Suspect]
     Indication: GASTRIC CANCER
     Dosage: 68 MG/BODY (50.7 MG/M2)
     Route: 041
     Dates: start: 20110209, end: 20110302
  4. CAMPTOSAR [Suspect]
     Dosage: 50 MG/BODY (37.3 MG/M2)
     Route: 041
     Dates: start: 20110412, end: 20110426

REACTIONS (3)
  - INTERSTITIAL LUNG DISEASE [None]
  - PNEUMONIA BACTERIAL [None]
  - PNEUMONIA FUNGAL [None]
